FAERS Safety Report 8513268-7 (Version None)
Quarter: 2012Q3

REPORT INFORMATION
  Report Type: 
  Country: None (occurrence: None)
  Receive Date: 20120716
  Receipt Date: 20120703
  Transmission Date: 20120928
  Serious: Yes (Hospitalization, Other)
  Sender: FDA-Public Use
  Company Number: US-ELI_LILLY_AND_COMPANY-US201207001533

PATIENT
  Sex: Female
  Weight: 119.27 kg

DRUGS (10)
  1. DIOVAN HCT [Concomitant]
     Indication: PROPHYLAXIS
     Dosage: 1 DF, QD
     Route: 048
  2. PRISTIQ [Concomitant]
     Indication: DEPRESSION
     Dosage: 50 MG, QD
     Route: 048
  3. VYTORIN [Concomitant]
     Indication: BLOOD CHOLESTEROL
     Dosage: 40 MG, QD
     Route: 048
  4. LANTUS [Concomitant]
     Indication: INSULIN-REQUIRING TYPE 2 DIABETES MELLITUS
     Dosage: 26 U, EACH EVENING
     Route: 058
  5. XOPENEX HFA [Concomitant]
     Indication: ASTHMA
     Dosage: UNK
     Route: 055
  6. PULMICORT [Concomitant]
     Indication: ASTHMA
     Dosage: UNK
     Route: 055
  7. BYDUREON [Suspect]
     Indication: INSULIN-REQUIRING TYPE 2 DIABETES MELLITUS
     Dosage: 2 MG, WEEKLY (1/W)
     Route: 058
     Dates: start: 20120201
  8. ACTOS [Concomitant]
     Indication: INSULIN-REQUIRING TYPE 2 DIABETES MELLITUS
     Dosage: 30 MG, QD
     Route: 048
  9. METFORMIN HYDROCHLORIDE [Concomitant]
     Indication: INSULIN-REQUIRING TYPE 2 DIABETES MELLITUS
     Dosage: 2000 MG, EACH EVENING
     Route: 048
  10. LANTUS [Concomitant]
     Dosage: UNK UNK, EACH EVENING
     Route: 058

REACTIONS (8)
  - INJECTION SITE MASS [None]
  - INTERNATIONAL NORMALISED RATIO INCREASED [None]
  - WEIGHT DECREASED [None]
  - JOINT INJURY [None]
  - INTERNATIONAL NORMALISED RATIO DECREASED [None]
  - PULMONARY THROMBOSIS [None]
  - OFF LABEL USE [None]
  - INJECTION SITE HAEMATOMA [None]
